FAERS Safety Report 8414926-5 (Version None)
Quarter: 2012Q2

REPORT INFORMATION
  Report Type: 
  Country: None (occurrence: None)
  Receive Date: 20120601
  Receipt Date: 20120601
  Transmission Date: 20120825
  Serious: Yes (Other)
  Sender: FDA-Public Use
  Company Number: None

PATIENT
  Age: 51 Year
  Sex: Female
  Weight: 145.151 kg

DRUGS (1)
  1. XARELTO [Suspect]
     Indication: ATRIAL FIBRILLATION
     Dosage: 20 MG 1X DAILY PO
     Route: 048
     Dates: start: 20120529, end: 20120529

REACTIONS (4)
  - URTICARIA [None]
  - SWELLING FACE [None]
  - EYE SWELLING [None]
  - SINUSITIS BACTERIAL [None]
